FAERS Safety Report 24604352 (Version 7)
Quarter: 2025Q1

REPORT INFORMATION
  Report Type: Spontaneous
  Country: US (occurrence: US)
  Receive Date: 20241111
  Receipt Date: 20250226
  Transmission Date: 20250408
  Serious: No
  Sender: MERCK SHARP & DOHME LLC
  Company Number: US-PFIZER INC-PV202400113332

PATIENT
  Age: 63 Year
  Sex: Female

DRUGS (8)
  1. TUKYSA [Suspect]
     Active Substance: TUCATINIB
     Indication: Human epidermal growth factor receptor positive
     Dosage: DOSE DESCRIPTION : 150MG 2 TABLETS TWICE A DAY/ TAKE TWO 150 TABLETS BY MOUTH TWICE DAILY?DAILY D...
     Route: 048
  2. TUKYSA [Suspect]
     Active Substance: TUCATINIB
     Indication: Human epidermal growth factor receptor positive
     Dosage: DOSE DESCRIPTION : 2 TABLETS PO (PER ORAL) BID (TWICE A DAY)?DAILY DOSE : 4 DOSAGE FORM
     Route: 048
  3. NORCO [Suspect]
     Active Substance: ACETAMINOPHEN\HYDROCODONE BITARTRATE
     Indication: Back pain
  4. LUNESTA [Suspect]
     Active Substance: ESZOPICLONE
  5. LUNESTA [Suspect]
     Active Substance: ESZOPICLONE
  6. XELODA [Concomitant]
     Active Substance: CAPECITABINE
     Indication: Human epidermal growth factor receptor positive
  7. XELODA [Concomitant]
     Active Substance: CAPECITABINE
     Indication: Human epidermal growth factor receptor positive
  8. XELODA [Concomitant]
     Active Substance: CAPECITABINE
     Indication: Human epidermal growth factor receptor positive

REACTIONS (6)
  - Urinary tract infection [Unknown]
  - Pain [Unknown]
  - Brain fog [Unknown]
  - Off label use [Unknown]
  - Product use issue [Unknown]
  - Off label use [Unknown]
